FAERS Safety Report 6068771-9 (Version None)
Quarter: 2009Q1

REPORT INFORMATION
  Report Type: 
  Country: None (occurrence: None)
  Receive Date: 20090203
  Receipt Date: 20090120
  Transmission Date: 20090719
  Serious: Yes (Other)
  Sender: FDA-Public Use
  Company Number: 2008-03897

PATIENT
  Age: 69 Year
  Sex: Female
  Weight: 50 kg

DRUGS (6)
  1. VELCADE [Suspect]
     Indication: MULTIPLE MYELOMA
     Dosage: 1.9 MG, INTRAVENOUS
     Route: 042
     Dates: start: 20071022
  2. CIPROFLOXACIN HCL [Concomitant]
  3. DIFLUCAN [Concomitant]
  4. PREDONINE [Concomitant]
  5. FAMOTIDINE [Concomitant]
  6. LENDORM [Concomitant]

REACTIONS (5)
  - FALL [None]
  - NEUROPATHY PERIPHERAL [None]
  - PLATELET COUNT DECREASED [None]
  - SUBARACHNOID HAEMORRHAGE [None]
  - TRAUMATIC HAEMATOMA [None]
